FAERS Safety Report 9337983 (Version 2)
Quarter: 2013Q3

REPORT INFORMATION
  Report Type: Report from Study
  Country: IE (occurrence: IE)
  Receive Date: 20130609
  Receipt Date: 20130703
  Transmission Date: 20140515
  Serious: Yes (Other)
  Sender: FDA-Public Use
  Company Number: IE-BRISTOL-MYERS SQUIBB COMPANY-18983536

PATIENT
  Age: 67 Year
  Sex: Male

DRUGS (1)
  1. ORENCIA [Suspect]
     Indication: RHEUMATOID ARTHRITIS
     Dosage: 27FEB13-?27MAR13-?24APR13-?22MAY13-
     Route: 042
     Dates: start: 20130129

REACTIONS (1)
  - Atrial fibrillation [Not Recovered/Not Resolved]
